FAERS Safety Report 12449035 (Version 1)
Quarter: 2016Q2

REPORT INFORMATION
  Report Type: Spontaneous
  Country: None (occurrence: US)
  Receive Date: 20160608
  Receipt Date: 20160608
  Transmission Date: 20160815
  Serious: Yes (Death)
  Sender: FDA-Public Use
  Company Number: US-BION-20160195

PATIENT
  Age: 39 Year
  Sex: Male

DRUGS (1)
  1. LOPRAMIDE UNKNOWN [Suspect]
     Active Substance: LOPERAMIDE
     Indication: DRUG DEPENDENCE
     Route: 048

REACTIONS (6)
  - Arrhythmia [Fatal]
  - Cardiomegaly [Fatal]
  - Drug abuse [Fatal]
  - Cardiac arrest [Fatal]
  - Product use issue [Unknown]
  - Pulmonary oedema [Fatal]
